FAERS Safety Report 13914461 (Version 1)
Quarter: 2017Q3

REPORT INFORMATION
  Report Type: Spontaneous
  Country: US (occurrence: US)
  Receive Date: 20170828
  Receipt Date: 20170828
  Transmission Date: 20171127
  Serious: No
  Sender: FDA-Public Use
  Company Number: US-ROCHE-1140513

PATIENT
  Sex: Male
  Weight: 30.2 kg

DRUGS (3)
  1. NUTROPIN AQ [Suspect]
     Active Substance: SOMATROPIN
     Indication: GROWTH HORMONE DEFICIENCY
     Dosage: DOSE PER INJECTION 0.2 ML
     Route: 058
  2. NUTROPIN AQ [Suspect]
     Active Substance: SOMATROPIN
     Dosage: INJECTION VOLUME 0.28 ML
     Route: 058
  3. NUTROPIN AQ [Suspect]
     Active Substance: SOMATROPIN
     Route: 065

REACTIONS (5)
  - Abdominal pain [Unknown]
  - Headache [Unknown]
  - Nasopharyngitis [Unknown]
  - Aphthous ulcer [Unknown]
  - Drug dose omission [Unknown]
